FAERS Safety Report 9648143 (Version 2)
Quarter: 2013Q4

REPORT INFORMATION
  Report Type: Report from Study
  Country: US (occurrence: US)
  Receive Date: 20131028
  Receipt Date: 20131028
  Transmission Date: 20140711
  Serious: Yes (Hospitalization)
  Sender: FDA-Public Use
  Company Number: PHEH2013US018194

PATIENT
  Age: 55 Year
  Sex: Male

DRUGS (9)
  1. TASIGNA [Suspect]
     Indication: NEOPLASM MALIGNANT
     Dosage: 400 MG, Q12H
     Route: 048
     Dates: start: 20100825
  2. TASIGNA [Suspect]
     Indication: OFF LABEL USE
  3. WARFARIN [Concomitant]
  4. IRON [Concomitant]
  5. NOVOLIN [Concomitant]
  6. VYTORIN [Concomitant]
  7. DOCUSATE [Concomitant]
  8. MECLIZINE [Concomitant]
  9. PMS-PROMETHAZINE [Concomitant]

REACTIONS (2)
  - Vomiting [Not Recovered/Not Resolved]
  - Loss of consciousness [Not Recovered/Not Resolved]
